FAERS Safety Report 6099605-4 (Version None)
Quarter: 2009Q1

REPORT INFORMATION
  Report Type: 
  Country: None (occurrence: None)
  Receive Date: 20090303
  Receipt Date: 20090225
  Transmission Date: 20090719
  Serious: Yes (Other)
  Sender: FDA-Public Use
  Company Number: GB-BAYER-200710196BNE

PATIENT
  Sex: Male

DRUGS (3)
  1. ASPIRIN [Suspect]
  2. IBUPROFEN [Suspect]
  3. PAROXETINE HCL [Suspect]

REACTIONS (2)
  - DRUG WITHDRAWAL SYNDROME [None]
  - SUICIDE ATTEMPT [None]
